FAERS Safety Report 5356397-1 (Version None)
Quarter: 2007Q2

REPORT INFORMATION
  Report Type: 
  Country: None (occurrence: None)
  Receive Date: 20070530
  Receipt Date: 20061213
  Transmission Date: 20071010
  Serious: Yes (Hospitalization)
  Sender: FDA-Public Use
  Company Number: US200609003772

PATIENT
  Age: 58 Year
  Sex: Female
  Weight: 110.2 kg

DRUGS (1)
  1. ZYPREXA [Suspect]
     Dosage: 2.5 MG
     Dates: start: 19990101, end: 20020101

REACTIONS (2)
  - DIABETES MELLITUS [None]
  - HYPERTENSION [None]
